FAERS Safety Report 5676002-4 (Version None)
Quarter: 2008Q1

REPORT INFORMATION
  Report Type: 
  Country: None (occurrence: None)
  Receive Date: 20080318
  Receipt Date: 20080229
  Transmission Date: 20080703
  Serious: Yes (Death)
  Sender: FDA-Public Use
  Company Number: 2008-01634

PATIENT
  Age: 56 Year
  Sex: Female

DRUGS (2)
  1. COLCHICUM JTL LIQ [Suspect]
     Indication: FIBROMYALGIA
     Dosage: 16 MG, 1/WEEK, INTRAVENOUS
     Route: 042
     Dates: start: 20060101, end: 20060330
  2. COLCHICUM JTL LIQ [Suspect]
     Indication: NECK PAIN
     Dosage: 16 MG, 1/WEEK, INTRAVENOUS
     Route: 042
     Dates: start: 20060101, end: 20060330

REACTIONS (5)
  - ACCIDENTAL OVERDOSE [None]
  - CARDIAC ARREST [None]
  - DRUG DISPENSING ERROR [None]
  - MEDICATION ERROR [None]
  - THERAPEUTIC AGENT TOXICITY [None]
